FAERS Safety Report 8346221-7 (Version None)
Quarter: 2012Q2

REPORT INFORMATION
  Report Type: 
  Country: None (occurrence: None)
  Receive Date: 20120509
  Receipt Date: 20120501
  Transmission Date: 20120825
  Serious: Yes (Hospitalization)
  Sender: FDA-Public Use
  Company Number: US-US-EMD SERONO, INC.-232526K09USA

PATIENT
  Sex: Female
  Weight: 82 kg

DRUGS (8)
  1. REBIF [Suspect]
     Indication: MULTIPLE SCLEROSIS
     Route: 058
     Dates: start: 20090210
  2. REBIF [Suspect]
     Route: 058
  3. ATENOLOL [Concomitant]
     Indication: HYPERTENSION
  4. CARBAMAZEPINE [Concomitant]
     Indication: NEURALGIA
  5. BISMUTH SUBSALICYLATE [Concomitant]
     Indication: PRODUCT USED FOR UNKNOWN INDICATION
  6. AMANTADINE HCL [Concomitant]
     Indication: FATIGUE
  7. LEVOTHYROXINE SODIUM [Concomitant]
     Indication: HYPOTHYROIDISM
  8. REBIF [Suspect]
     Route: 058
     Dates: start: 20090101

REACTIONS (1)
  - VENOUS THROMBOSIS LIMB [None]
